FAERS Safety Report 5737838-4 (Version None)
Quarter: 2008Q2

REPORT INFORMATION
  Report Type: 
  Country: None (occurrence: None)
  Receive Date: 20080512
  Receipt Date: 20080512
  Transmission Date: 20081010
  Serious: No
  Sender: FDA-Public Use
  Company Number: None

PATIENT
  Age: 63 Year
  Sex: Female
  Weight: 54.4316 kg

DRUGS (1)
  1. CLINDAMYCIN HCL [Suspect]
     Indication: DENTAL OPERATION
     Dosage: 2 CAPS      6 HRS
     Dates: start: 20080415, end: 20080422

REACTIONS (3)
  - CHEST PAIN [None]
  - PRURITUS [None]
  - URTICARIA [None]
